FAERS Safety Report 5786834-X (Version None)
Quarter: 2008Q2

REPORT INFORMATION
  Report Type: 
  Country: None (occurrence: None)
  Receive Date: 20080618
  Receipt Date: 20080611
  Transmission Date: 20081010
  Serious: Yes (Death, Life-Threatening)
  Sender: FDA-Public Use
  Company Number: 2008-01063

PATIENT
  Sex: Male

DRUGS (11)
  1. VELCADE [Suspect]
     Indication: MULTIPLE MYELOMA
     Dates: start: 20080311
  2. TIMENTIN (TICARCILLIN DISODIUM, CLAVULANIC ACID) [Concomitant]
  3. VANCOMYCIN [Concomitant]
  4. GABAPENTIN [Concomitant]
  5. AMITRIPTLINE HCL [Concomitant]
  6. OMEPRAZOLE [Concomitant]
  7. ACETYLSALICYLIC ACID SRT [Concomitant]
  8. HEPARIN [Concomitant]
  9. DEXAMETHASONE TAB [Concomitant]
  10. BISOPROLOL FUMARATE [Concomitant]
  11. HYDROCORTISONE [Concomitant]

REACTIONS (7)
  - ARRHYTHMIA [None]
  - AZOTAEMIA [None]
  - CARDIAC FAILURE [None]
  - DELIRIUM [None]
  - DIALYSIS DEVICE COMPLICATION [None]
  - HYPOTENSION [None]
  - SEPSIS [None]
